FAERS Safety Report 14201777 (Version 3)
Quarter: 2017Q4

REPORT INFORMATION
  Report Type: Spontaneous
  Country: US (occurrence: US)
  Receive Date: 20171117
  Receipt Date: 20171229
  Transmission Date: 20180321
  Serious: Yes (Other)
  Sender: FDA-Public Use
  Company Number: US-OMEROS CORPORATION-2017OME00014

PATIENT
  Age: 74 Year
  Sex: Female

DRUGS (17)
  1. AZITHROMYCIN ANHYDROUS. [Concomitant]
     Active Substance: AZITHROMYCIN ANHYDROUS
     Dosage: 250 MG, 1X/DAY
     Route: 048
  2. METFORMIN [Concomitant]
     Active Substance: METFORMIN HYDROCHLORIDE
     Dosage: 1000 MG, 1X/DAY
     Route: 048
  3. OFLOXACIN. [Concomitant]
     Active Substance: OFLOXACIN
     Dosage: 1 DROP, 4X/DAY TO BOTH EYES
     Route: 047
     Dates: start: 20170902
  4. CLODIPROGREL [Concomitant]
     Dosage: 75 MG, 1X/DAY
     Route: 048
  5. STERILE SALINE [Concomitant]
     Dosage: UNK
     Route: 047
     Dates: start: 20170905, end: 20170905
  6. DUOVISC [Concomitant]
     Active Substance: CHONDROITIN SULFATE A\HYALURONATE SODIUM
     Dosage: UNK
     Dates: start: 20170905, end: 20170905
  7. ALCON BSS IRRIGATION SOLUTION [Concomitant]
     Dosage: UNK, ONCE, LEFT EYE
     Dates: start: 20170905, end: 20170905
  8. AMLODIPINE [Concomitant]
     Active Substance: AMLODIPINE BESYLATE
     Dosage: 2.5 MG, 1X/DAY
     Route: 048
  9. SIMVASTATIN. [Concomitant]
     Active Substance: SIMVASTATIN
     Dosage: 20 MG, 1X/DAY
     Route: 048
  10. PRESERVATIVE FREE INTRAOCULAR LIDOCAINE [Concomitant]
     Dosage: 4 ML, UNK
     Dates: start: 20170905, end: 20170905
  11. OMIDRIA [Suspect]
     Active Substance: KETOROLAC\PHENYLEPHRINE
     Indication: CATARACT OPERATION
     Dosage: UNK UNK, ONCE, LEFT EYE
     Dates: start: 20170905, end: 20170905
  12. HUMALOG MIX 50-50 KWIKPEN [Concomitant]
     Dosage: 100 U, 1X/DAY
     Route: 058
  13. LISINOPRIL. [Concomitant]
     Active Substance: LISINOPRIL
     Dosage: 20 MG, 1X/DAY
     Route: 048
  14. BETADINE [Concomitant]
     Active Substance: POVIDONE-IODINE
     Dosage: UNK
     Route: 061
     Dates: start: 20170905, end: 20170905
  15. OMIDRIA [Suspect]
     Active Substance: KETOROLAC\PHENYLEPHRINE
     Indication: INTRAOCULAR LENS IMPLANT
  16. KETOROLAC [Concomitant]
     Active Substance: KETOROLAC\KETOROLAC TROMETHAMINE
     Dosage: 1 DROP, UNK LEFT EYE
     Route: 047
     Dates: start: 20170902
  17. VISCOAT [Concomitant]
     Dosage: UNK
     Route: 031
     Dates: start: 20170905, end: 20170905

REACTIONS (1)
  - Toxic anterior segment syndrome [Recovered/Resolved]

NARRATIVE: CASE EVENT DATE: 20170906
